FAERS Safety Report 7777484-4 (Version None)
Quarter: 2011Q3

REPORT INFORMATION
  Report Type: 
  Country: None (occurrence: None)
  Receive Date: 20110926
  Receipt Date: 20110916
  Transmission Date: 20111222
  Serious: Yes (Other)
  Sender: FDA-Public Use
  Company Number: FR-NOVOPROD-335402

PATIENT

DRUGS (8)
  1. GLYBURIDE [Concomitant]
  2. APROVEL [Concomitant]
  3. ASPIRIN [Concomitant]
  4. NOVORAPID [Concomitant]
  5. CRESTOR [Concomitant]
  6. VICTOZA [Suspect]
     Dosage: 1.2 MG, QD
     Route: 058
     Dates: end: 20110607
  7. GLUCOPHAGE [Concomitant]
  8. VICTOZA [Suspect]
     Indication: DIABETES MELLITUS
     Dosage: 0.6 MG, QD
     Route: 058
     Dates: start: 20101215

REACTIONS (1)
  - PANCREATITIS [None]
